FAERS Safety Report 15157108 (Version 1)
Quarter: 2018Q3

REPORT INFORMATION
  Report Type: Spontaneous
  Country: SE (occurrence: SE)
  Receive Date: 20180718
  Receipt Date: 20180718
  Transmission Date: 20181010
  Serious: Yes (Life-Threatening, Hospitalization)
  Sender: FDA-Public Use
  Company Number: SE-TEVA-2018-SE-927418

PATIENT
  Age: 53 Year
  Sex: Female

DRUGS (1)
  1. CLINDAMYCIN ACTAVIS 300 MG KAPSEL, H?RD [Suspect]
     Active Substance: CLINDAMYCIN
     Indication: SINUSITIS
     Dosage: 600 MILLIGRAM DAILY;
     Route: 065
     Dates: start: 20180615, end: 20180617

REACTIONS (1)
  - Dyspnoea [Recovering/Resolving]

NARRATIVE: CASE EVENT DATE: 20180616
